FAERS Safety Report 6038152-2 (Version None)
Quarter: 2009Q1

REPORT INFORMATION
  Report Type: 
  Country: None (occurrence: None)
  Receive Date: 20090113
  Receipt Date: 20090113
  Transmission Date: 20090719
  Serious: Yes (Life-Threatening, Other)
  Sender: FDA-Public Use
  Company Number: None

PATIENT
  Age: 32 Year
  Sex: Female
  Weight: 90.7194 kg

DRUGS (1)
  1. LAMOTRIGINE [Suspect]
     Indication: CONVULSION
     Dosage: 250MG TWICE A DAY PO
     Route: 048
     Dates: start: 20081201, end: 20081208

REACTIONS (5)
  - COORDINATION ABNORMAL [None]
  - FEELING ABNORMAL [None]
  - PALPITATIONS [None]
  - PRODUCT QUALITY ISSUE [None]
  - VISION BLURRED [None]
